FAERS Safety Report 6454001-2 (Version None)
Quarter: 2009Q4

REPORT INFORMATION
  Report Type: 
  Country: None (occurrence: None)
  Receive Date: 20091124
  Receipt Date: 20091118
  Transmission Date: 20100525
  Serious: Yes (Hospitalization)
  Sender: FDA-Public Use
  Company Number: A0700319A

PATIENT
  Age: 69 Year
  Sex: Male
  Weight: 86.8 kg

DRUGS (10)
  1. AVANDIA [Suspect]
     Route: 048
     Dates: start: 20050101, end: 20070529
  2. AVANDAMET [Suspect]
     Route: 048
     Dates: start: 20050101, end: 20070529
  3. AVANDARYL [Suspect]
     Route: 048
     Dates: start: 20050101, end: 20070529
  4. LOPRESSOR [Concomitant]
     Dates: start: 19980101
  5. LOTENSIN [Concomitant]
  6. NORVASC [Concomitant]
  7. LIPITOR [Concomitant]
  8. FOLIC ACID [Concomitant]
  9. GLUCOPHAGE [Concomitant]
  10. GLUCOTROL [Concomitant]

REACTIONS (5)
  - CORONARY ARTERY DISEASE [None]
  - DRUG INEFFECTIVE [None]
  - HEART INJURY [None]
  - INJURY [None]
  - MYOCARDIAL INFARCTION [None]
